FAERS Safety Report 14881870 (Version 1)
Quarter: 2018Q2

REPORT INFORMATION
  Report Type: Spontaneous
  Country: JP (occurrence: JP)
  Receive Date: 20180511
  Receipt Date: 20180511
  Transmission Date: 20180711
  Serious: Yes (Other)
  Sender: FDA-Public Use
  Company Number: JP-PFIZER INC-2018190341

PATIENT
  Sex: Female

DRUGS (2)
  1. IBRANCE [Suspect]
     Active Substance: PALBOCICLIB
     Indication: BREAST CANCER
     Dosage: 125 MG, UNK
     Route: 048
  2. FULVESTRANT. [Concomitant]
     Active Substance: FULVESTRANT

REACTIONS (2)
  - Neutrophil count decreased [Recovered/Resolved]
  - Bone marrow failure [Recovered/Resolved]
